FAERS Safety Report 22207638 (Version 4)
Quarter: 2023Q2

REPORT INFORMATION
  Report Type: Spontaneous
  Country: IE (occurrence: IE)
  Receive Date: 20230413
  Receipt Date: 20230524
  Transmission Date: 20230721
  Serious: Yes (Life-Threatening, Hospitalization, Other)
  Sender: FDA-Public Use
  Company Number: None

PATIENT
  Age: 4 Month
  Sex: Male

DRUGS (2)
  1. CETIRIZINE HYDROCHLORIDE [Suspect]
     Active Substance: CETIRIZINE HYDROCHLORIDE
     Indication: Exposure via breast milk
     Dosage: MATERNAL DOSE: UNK, PRN (ONLY USED A FEW TIMES WHEN NEEDED, USED ABOUT 3 TIMES.)
     Route: 063
     Dates: start: 20210329, end: 20210409
  2. CETIRIZINE HYDROCHLORIDE [Suspect]
     Active Substance: CETIRIZINE HYDROCHLORIDE
     Dosage: MATERNAL DOSE: UNK, PRN (ONLY USED A FEW TIMES WHEN NEEDED, USED ABOUT 3 TIMES.)
     Route: 063
     Dates: start: 20220331

REACTIONS (7)
  - Oxygen saturation decreased [Recovered/Resolved]
  - Respiratory arrest [Recovered/Resolved]
  - Cyanosis [Recovered/Resolved]
  - Lethargy [Recovered/Resolved]
  - Somnolence [Recovering/Resolving]
  - Floppy infant [Recovered/Resolved]
  - Exposure via breast milk [Unknown]

NARRATIVE: CASE EVENT DATE: 20210101
